FAERS Safety Report 12859563 (Version 2)
Quarter: 2016Q4

REPORT INFORMATION
  Report Type: Spontaneous
  Country: US (occurrence: US)
  Receive Date: 20161018
  Receipt Date: 20161102
  Transmission Date: 20170207
  Serious: Yes (Hospitalization)
  Sender: FDA-Public Use
  Company Number: US-RELYPSA-RLY2016002975

PATIENT
  Sex: Female

DRUGS (12)
  1. LASIX [Concomitant]
     Active Substance: FUROSEMIDE
  2. ASPIRIN. [Concomitant]
     Active Substance: ASPIRIN
  3. FEXOFENADINE HCL [Concomitant]
     Active Substance: FEXOFENADINE HYDROCHLORIDE
  4. IRON [Concomitant]
     Active Substance: IRON
  5. BISACODYL. [Concomitant]
     Active Substance: BISACODYL
  6. SINEMET [Concomitant]
     Active Substance: CARBIDOPA\LEVODOPA
  7. VELTASSA [Suspect]
     Active Substance: PATIROMER
     Indication: HYPERKALAEMIA
     Dosage: 8.4 G, QD
     Route: 048
     Dates: start: 20160528, end: 2016
  8. JANUVIA [Concomitant]
     Active Substance: SITAGLIPTIN PHOSPHATE
  9. MEVACOR [Concomitant]
     Active Substance: LOVASTATIN
  10. CORAL CALCIUM PLUS [Concomitant]
  11. DITROPAN [Concomitant]
     Active Substance: OXYBUTYNIN CHLORIDE
  12. OMEPRAZOLE. [Concomitant]
     Active Substance: OMEPRAZOLE

REACTIONS (1)
  - Cerebrovascular accident [Not Recovered/Not Resolved]
